FAERS Safety Report 7999190-3 (Version None)
Quarter: 2011Q4

REPORT INFORMATION
  Report Type: 
  Country: None (occurrence: None)
  Receive Date: 20111221
  Receipt Date: 20111213
  Transmission Date: 20120403
  Serious: Yes (Hospitalization)
  Sender: FDA-Public Use
  Company Number: ES-ABBOTT-11P-144-0882878-00

PATIENT
  Sex: Female

DRUGS (2)
  1. HUMIRA [Suspect]
     Indication: PSORIASIS
     Route: 058
     Dates: start: 20091101, end: 20111001
  2. IBUPROFEN [Concomitant]
     Indication: HEADACHE

REACTIONS (6)
  - LUNG INFILTRATION [None]
  - COMPUTERISED TOMOGRAM THORAX ABNORMAL [None]
  - LYMPHADENOPATHY [None]
  - PYREXIA [None]
  - HEADACHE [None]
  - PULMONARY TUBERCULOSIS [None]
